FAERS Safety Report 4791679-3 (Version None)
Quarter: 2005Q4

REPORT INFORMATION
  Report Type: 
  Country: None (occurrence: None)
  Receive Date: 20051007
  Receipt Date: 20050829
  Transmission Date: 20060501
  Serious: Yes (Death)
  Sender: FDA-Public Use
  Company Number: JPKYO-S-20050023

PATIENT
  Age: 66 Year
  Sex: Male

DRUGS (11)
  1. NAVELBINE [Suspect]
     Indication: LUNG SQUAMOUS CELL CARCINOMA STAGE UNSPECIFIED
     Route: 042
     Dates: start: 20050727, end: 20050803
  2. PARAPLATIN [Suspect]
     Indication: LUNG SQUAMOUS CELL CARCINOMA STAGE UNSPECIFIED
     Route: 042
     Dates: start: 20050727, end: 20050727
  3. TULOBUTEROL [Suspect]
     Indication: COUGH
     Dosage: 2MG PER DAY
     Route: 062
     Dates: start: 20050801, end: 20050808
  4. THEO-DUR [Suspect]
     Indication: STRIDOR
     Dosage: 200MG PER DAY
     Route: 048
     Dates: start: 20050801, end: 20050808
  5. TAXOL [Concomitant]
     Dates: start: 20050314, end: 20050623
  6. CYANOCOBALAMIN [Concomitant]
     Dates: start: 20050708, end: 20050808
  7. CODEINE [Concomitant]
  8. PREDNISOLONE [Concomitant]
     Dates: start: 20050708, end: 20050808
  9. COTRIM [Concomitant]
     Dates: start: 20050708, end: 20050808
  10. LASIX [Concomitant]
     Dates: start: 20050711, end: 20050806
  11. ALDACTONE [Concomitant]
     Dates: start: 20050711, end: 20050806

REACTIONS (6)
  - CARDIO-RESPIRATORY ARREST [None]
  - FALL [None]
  - HAEMORRHAGIC DIATHESIS [None]
  - HEPATIC ENZYME INCREASED [None]
  - HEPATITIS [None]
  - NAUSEA [None]
